FAERS Safety Report 10224105 (Version 2)
Quarter: 2014Q2

REPORT INFORMATION
  Report Type: Report from Study
  Country: CA (occurrence: None)
  Receive Date: 20140605
  Receipt Date: 20140611
  Transmission Date: 20141212
  Serious: Yes (Death)
  Sender: FDA-Public Use
  Company Number: CA-015877

PATIENT
  Age: 87 Year
  Sex: Male

DRUGS (1)
  1. FIRMAGON [Suspect]
     Indication: PROSTATE CANCER
     Dosage: 1X/MONTH
     Route: 058
     Dates: start: 20140317, end: 20140415

REACTIONS (1)
  - Death [None]
